FAERS Safety Report 12160740 (Version 1)
Quarter: 2016Q1

REPORT INFORMATION
  Report Type: Spontaneous
  Country: US (occurrence: US)
  Receive Date: 20160308
  Receipt Date: 20160308
  Transmission Date: 20160526
  Serious: Yes (Hospitalization)
  Sender: FDA-Public Use
  Company Number: US-RETROPHIN, INC.-2016RTN00003

PATIENT
  Age: 7 Month
  Sex: Female

DRUGS (2)
  1. AQUADUCT VITAMINS [Concomitant]
  2. CHOLBAM [Suspect]
     Active Substance: CHOLIC ACID
     Indication: INBORN ERROR OF METABOLISM
     Dosage: 50 MG, 1X/DAY
     Route: 048
     Dates: start: 20160208

REACTIONS (3)
  - Ascites [Recovering/Resolving]
  - Vitamin K decreased [Unknown]
  - Retching [Recovered/Resolved]

NARRATIVE: CASE EVENT DATE: 201602
